FAERS Safety Report 4509577-9 (Version None)
Quarter: 2004Q4

REPORT INFORMATION
  Report Type: 
  Country: None (occurrence: None)
  Receive Date: 20041119
  Receipt Date: 20041103
  Transmission Date: 20050328
  Serious: Yes (Disabling)
  Sender: FDA-Public Use
  Company Number: USA041183119

PATIENT
  Age: 53 Year
  Sex: Female

DRUGS (2)
  1. HUMULIN N [Suspect]
     Indication: DIABETES MELLITUS
  2. HUMULIN R [Suspect]
     Indication: DIABETES MELLITUS

REACTIONS (7)
  - ARTHRITIS [None]
  - CARPAL TUNNEL SYNDROME [None]
  - DIABETES MELLITUS INADEQUATE CONTROL [None]
  - INFECTION [None]
  - NERVE INJURY [None]
  - PNEUMONIA [None]
  - STRESS SYMPTOMS [None]
